FAERS Safety Report 20882582 (Version 1)
Quarter: 2022Q2

REPORT INFORMATION
  Report Type: Spontaneous
  Country: HK (occurrence: HK)
  Receive Date: 20220527
  Receipt Date: 20220527
  Transmission Date: 20220720
  Serious: Yes (Other)
  Sender: FDA-Public Use
  Company Number: HK-UCBSA-2022028647

PATIENT

DRUGS (1)
  1. CIMZIA [Suspect]
     Active Substance: CERTOLIZUMAB PEGOL
     Indication: Spondylitis
     Dosage: UNKNOWN DOSE

REACTIONS (3)
  - Urinary tract infection [Unknown]
  - Skin infection [Unknown]
  - Arthritis bacterial [Unknown]
